FAERS Safety Report 7805029-9 (Version None)
Quarter: 2011Q4

REPORT INFORMATION
  Report Type: 
  Country: None (occurrence: None)
  Receive Date: 20111010
  Receipt Date: 20111006
  Transmission Date: 20120403
  Serious: Yes (Other)
  Sender: FDA-Public Use
  Company Number: US-GLAXOSMITHKLINE-A0947993A

PATIENT
  Age: 13 Year
  Sex: Male
  Weight: 39.6 kg

DRUGS (14)
  1. METHOTREXATE [Suspect]
     Indication: PRECURSOR B-LYMPHOBLASTIC LYMPHOMA
     Route: 037
     Dates: start: 20110908
  2. PEGASPARGASE [Suspect]
     Indication: PRECURSOR B-LYMPHOBLASTIC LYMPHOMA
     Dates: start: 20110908
  3. ZOFRAN [Suspect]
     Indication: PRODUCT USED FOR UNKNOWN INDICATION
  4. VINCRISTINE [Suspect]
     Indication: PRECURSOR B-LYMPHOBLASTIC LYMPHOMA
     Dosage: 1.5MGM2 CYCLIC
     Route: 040
     Dates: start: 20110908
  5. BACTRIM [Suspect]
     Indication: PRODUCT USED FOR UNKNOWN INDICATION
  6. RANITIDINE [Suspect]
     Indication: PRODUCT USED FOR UNKNOWN INDICATION
  7. PREDNISONE [Suspect]
     Indication: PRECURSOR B-LYMPHOBLASTIC LYMPHOMA
     Dosage: 20MGM2 CYCLIC
     Route: 048
     Dates: start: 20110908
  8. BENADRYL [Suspect]
     Indication: PRODUCT USED FOR UNKNOWN INDICATION
  9. CYTARABINE [Suspect]
     Indication: PRECURSOR B-LYMPHOBLASTIC LYMPHOMA
     Route: 037
  10. HYDROCORTISONE [Suspect]
     Indication: PRECURSOR B-LYMPHOBLASTIC LYMPHOMA
     Dates: start: 20110908
  11. ATIVAN [Suspect]
     Indication: PRODUCT USED FOR UNKNOWN INDICATION
  12. VELCADE [Suspect]
     Indication: PRECURSOR B-LYMPHOBLASTIC LYMPHOMA
     Dosage: 1.3MGM2 CYCLIC
     Route: 040
     Dates: start: 20110908
  13. DOXORUBICIN HCL [Suspect]
     Indication: PRECURSOR B-LYMPHOBLASTIC LYMPHOMA
     Dosage: 60MGM2 CYCLIC
     Route: 042
     Dates: start: 20110908
  14. SCOPOLAMINE [Suspect]
     Indication: PRODUCT USED FOR UNKNOWN INDICATION

REACTIONS (9)
  - PARAESTHESIA [None]
  - PAIN [None]
  - ANXIETY [None]
  - ANGER [None]
  - MEMORY IMPAIRMENT [None]
  - PRURITUS [None]
  - CONFUSIONAL STATE [None]
  - CHILLS [None]
  - AKATHISIA [None]
